FAERS Safety Report 5065715-3 (Version None)
Quarter: 2006Q3

REPORT INFORMATION
  Report Type: 
  Country: None (occurrence: None)
  Receive Date: 20060731
  Receipt Date: 20060725
  Transmission Date: 20061208
  Serious: Yes (Congenital Anomaly, Other)
  Sender: FDA-Public Use
  Company Number: US-MERCK-0607USA04970B1

PATIENT

DRUGS (1)
  1. COZAAR [Suspect]
     Indication: HYPERTENSION

REACTIONS (10)
  - DELAYED FONTANELLE CLOSURE [None]
  - DRUG EXPOSURE DURING PREGNANCY [None]
  - HYPOTENSION [None]
  - JOINT CONTRACTURE [None]
  - PREMATURE BABY [None]
  - RENAL DISORDER [None]
  - RENAL FAILURE NEONATAL [None]
  - RENAL TUBULAR ACIDOSIS [None]
  - RESPIRATORY FAILURE [None]
  - WEIGHT BELOW NORMAL [None]
